FAERS Safety Report 6135624-7 (Version None)
Quarter: 2009Q1

REPORT INFORMATION
  Report Type: 
  Country: None (occurrence: None)
  Receive Date: 20090327
  Receipt Date: 20080225
  Transmission Date: 20090719
  Serious: No
  Sender: FDA-Public Use
  Company Number: US-ASTRAZENECA-2008UW03934

PATIENT
  Age: 70 Year
  Sex: Female

DRUGS (3)
  1. ZESTRIL [Suspect]
     Indication: HYPERTENSION
     Route: 048
     Dates: start: 19980101, end: 20070101
  2. ZESTRIL [Suspect]
     Route: 048
     Dates: start: 20080401
  3. NEXIUM [Concomitant]
     Route: 048

REACTIONS (2)
  - BLOOD PRESSURE INCREASED [None]
  - FLUSHING [None]
